FAERS Safety Report 12781116 (Version 2)
Quarter: 2016Q4

REPORT INFORMATION
  Report Type: Spontaneous
  Country: DE (occurrence: DE)
  Receive Date: 20160926
  Receipt Date: 20161104
  Transmission Date: 20170207
  Serious: Yes (Other)
  Sender: FDA-Public Use
  Company Number: DE-TEVA-693743GER

PATIENT
  Age: 56 Year
  Sex: Female

DRUGS (4)
  1. BENLYSTA [Concomitant]
     Active Substance: BELIMUMAB
     Indication: SYSTEMIC LUPUS ERYTHEMATOSUS
     Route: 065
     Dates: start: 201205
  2. QUENSYL [Concomitant]
     Active Substance: HYDROXYCHLOROQUINE
     Indication: SYSTEMIC LUPUS ERYTHEMATOSUS
     Dosage: 300 MG/DAY
     Route: 065
     Dates: start: 201205
  3. RIBAVIRIN. [Suspect]
     Active Substance: RIBAVIRIN
     Indication: OFF LABEL USE
     Route: 065
  4. PREDNISONE. [Suspect]
     Active Substance: PREDNISONE
     Indication: IMMUNOSUPPRESSANT DRUG THERAPY
     Dosage: 5 MILLIGRAM DAILY;
     Route: 065
     Dates: start: 201205

REACTIONS (2)
  - Hepatitis E [Recovered/Resolved]
  - Off label use [Recovered/Resolved]
